FAERS Safety Report 16729042 (Version 1)
Quarter: 2019Q3

REPORT INFORMATION
  Report Type: Spontaneous
  Country: US (occurrence: US)
  Receive Date: 20190705
  Receipt Date: 20190705
  Transmission Date: 20191005
  Serious: No
  Sender: FDA-Public Use
  Company Number: None

PATIENT
  Sex: Male

DRUGS (1)
  1. NINLARO [Suspect]
     Active Substance: IXAZOMIB CITRATE
     Indication: PLASMA CELL MYELOMA
     Dosage: ?          OTHER FREQUENCY:DAYS 1, 8 , AND 15;?
     Route: 048
     Dates: start: 20190511

REACTIONS (7)
  - Asthenia [None]
  - Abdominal discomfort [None]
  - Paraesthesia [None]
  - Fatigue [None]
  - Nausea [None]
  - Burning sensation [None]
  - Peripheral swelling [None]
